FAERS Safety Report 24162541 (Version 1)
Quarter: 2024Q3

REPORT INFORMATION
  Report Type: Spontaneous
  Country: US (occurrence: None)
  Receive Date: 20240731
  Receipt Date: 20240731
  Transmission Date: 20241017
  Serious: Yes (Other)
  Sender: Public
  Company Number: None

PATIENT
  Age: 68 Year
  Sex: Female
  Weight: 104.4 kg

DRUGS (22)
  1. ROSUVASTATIN [Suspect]
     Active Substance: ROSUVASTATIN\ROSUVASTATIN CALCIUM
     Indication: Blood cholesterol increased
     Dosage: OTHER QUANTITY : 1 TABLET(S);?OTHER FREQUENCY : ONCE WEEKLY;?
     Route: 048
     Dates: start: 20240514, end: 20240703
  2. DEVICE [Concomitant]
     Active Substance: DEVICE
  3. BREO ELLIPTA [Concomitant]
     Active Substance: FLUTICASONE FUROATE\VILANTEROL TRIFENATATE
  4. ALBUTEROL [Concomitant]
     Active Substance: ALBUTEROL
  5. PROGESTERONE [Concomitant]
     Active Substance: PROGESTERONE
  6. ESTRACE [Concomitant]
     Active Substance: ESTRADIOL
  7. COMPOUND CREAM FOR ROSACEA [Concomitant]
  8. GLUCOSE METER [Concomitant]
  9. CANE [Concomitant]
  10. FLONASE [Concomitant]
     Active Substance: FLUTICASONE PROPIONATE
  11. LORATADINE [Concomitant]
     Active Substance: LORATADINE
  12. VITAMIN MULTI [Concomitant]
  13. VITAMIN B COMPLEX [Concomitant]
     Active Substance: CYANOCOBALAMIN\DEXPANTHENOL\NIACINAMIDE\PYRIDOXINE HYDROCHLORIDE\RIBOFLAVIN 5^-PHOSPHATE SODIUM\THIA
  14. PYRIDOXINE HYDROCHLORIDE [Concomitant]
     Active Substance: PYRIDOXINE HYDROCHLORIDE
  15. METHYLCOBALAMIN [Concomitant]
     Active Substance: METHYLCOBALAMIN
  16. D [Concomitant]
  17. TOCOPHEROL [Concomitant]
     Active Substance: TOCOPHEROL
  18. FISH OIL [Concomitant]
     Active Substance: FISH OIL
  19. LUTEIN W/ZEAXANTHAN [Concomitant]
  20. COENZYME Q10 [Concomitant]
     Active Substance: DIETARY SUPPLEMENT\UBIDECARENONE
  21. MG GLYCINATE [Concomitant]
  22. TAURINE [Concomitant]
     Active Substance: TAURINE

REACTIONS (3)
  - Drug intolerance [None]
  - Rhabdomyolysis [None]
  - Chronic kidney disease [None]

NARRATIVE: CASE EVENT DATE: 20240715
